FAERS Safety Report 6127417-1 (Version None)
Quarter: 2009Q1

REPORT INFORMATION
  Report Type: 
  Country: None (occurrence: None)
  Receive Date: 20090323
  Receipt Date: 20090310
  Transmission Date: 20090719
  Serious: Yes (Hospitalization)
  Sender: FDA-Public Use
  Company Number: DE-ELI_LILLY_AND_COMPANY-DE200902002201

PATIENT

DRUGS (10)
  1. GEMCITABINE HCL [Suspect]
     Indication: B-CELL LYMPHOMA
     Dosage: 1130 MG ON DAY 1 AND DAY 15
     Dates: start: 20070807
  2. OXALIPLATIN [Suspect]
     Indication: B-CELL LYMPHOMA
     Dosage: 93 MG ON DAY 1 AND DAY 15
     Dates: start: 20070807
  3. RITUXIMAB [Concomitant]
     Indication: B-CELL LYMPHOMA
     Dosage: 500 MG, UNK
     Dates: start: 20070807
  4. NITRENDIPIN [Concomitant]
     Dosage: 20 MG, DAILY (1/D)
  5. DELIX [Concomitant]
     Dosage: 5 MG, 2/D
  6. TORSEMIDE [Concomitant]
     Dosage: 10 MG, 2/D
  7. OMEPRAZOLE [Concomitant]
     Dosage: 20 MG, DAILY (1/D)
  8. AMITRIPTYLINE [Concomitant]
     Dosage: 25 MG, 2/D
  9. VALORON [Concomitant]
     Dosage: UNK, 2/D
  10. DURAGESIC-100 [Concomitant]
     Dosage: 12.5 UG, EVERY THREE DAYS

REACTIONS (9)
  - ANAEMIA [None]
  - DIARRHOEA [None]
  - DYSURIA [None]
  - FALL [None]
  - PALPITATIONS [None]
  - POLYNEUROPATHY [None]
  - PRESYNCOPE [None]
  - VERTIGO [None]
  - VISUAL IMPAIRMENT [None]
